FAERS Safety Report 17493130 (Version 1)
Quarter: 2020Q1

REPORT INFORMATION
  Report Type: Spontaneous
  Country: US (occurrence: US)
  Receive Date: 20200303
  Receipt Date: 20200303
  Transmission Date: 20200409
  Serious: No
  Sender: FDA-Public Use
  Company Number: US-AMNEAL PHARMACEUTICALS-2019-IPXL-00118

PATIENT
  Age: 50 Year
  Sex: Female
  Weight: 86 kg

DRUGS (7)
  1. RYTARY [Suspect]
     Active Substance: CARBIDOPA\LEVODOPA
     Dosage: 2 DOSAGE FORM, EVERY 4HR,32.75/145MG
     Route: 065
  2. ZOLPIDEM [Concomitant]
     Active Substance: ZOLPIDEM TARTRATE
     Indication: PARKINSON^S DISEASE
     Dosage: 12.5 MILLIGRAM, IF NEEDED
     Route: 065
     Dates: start: 2017
  3. PRAMIPEXOLE. [Concomitant]
     Active Substance: PRAMIPEXOLE
     Indication: PARKINSON^S DISEASE
     Dosage: 1.5 DOSAGE FORM, EVERY 6HR
     Route: 065
     Dates: start: 2016
  4. RYTARY [Suspect]
     Active Substance: CARBIDOPA\LEVODOPA
     Indication: PARKINSON^S DISEASE
     Dosage: 2 DOSAGE FORM, EVERY 4HR, 43.75/195MG
     Route: 065
  5. PRAMIPEXOLE. [Concomitant]
     Active Substance: PRAMIPEXOLE
     Dosage: HALF TABLET EVERY 6 HOURS
     Route: 065
     Dates: start: 2016
  6. RASAGILINE. [Concomitant]
     Active Substance: RASAGILINE
     Indication: PARKINSON^S DISEASE
     Dosage: 1 DOSAGE FORM, DAILY
     Route: 065
     Dates: start: 2017
  7. SERTRALINE [Concomitant]
     Active Substance: SERTRALINE HYDROCHLORIDE
     Indication: PARKINSON^S DISEASE
     Dosage: 1 DOSAGE FORM, DAILY
     Route: 065
     Dates: start: 2016

REACTIONS (6)
  - Therapy cessation [Unknown]
  - Tremor [Unknown]
  - Disturbance in attention [Unknown]
  - Dystonia [Unknown]
  - Pain [Unknown]
  - Fatigue [Unknown]

NARRATIVE: CASE EVENT DATE: 20180104
